FAERS Safety Report 25115970 (Version 1)
Quarter: 2025Q1

REPORT INFORMATION
  Report Type: Spontaneous
  Country: GB (occurrence: GB)
  Receive Date: 20250325
  Receipt Date: 20250325
  Transmission Date: 20250409
  Serious: Yes (Other)
  Sender: AMGEN
  Company Number: GB-AMGEN-GBRSP2025053963

PATIENT
  Sex: Male

DRUGS (2)
  1. ECULIZUMAB [Suspect]
     Active Substance: ECULIZUMAB
     Indication: Malignant atrophic papulosis
     Dosage: 600 MILLIGRAM, QWK (FOR 4 WEEKS)
     Route: 065
  2. ECULIZUMAB [Suspect]
     Active Substance: ECULIZUMAB
     Dosage: 900 MILLIGRAM, Q2WK
     Route: 065

REACTIONS (7)
  - Cerebral haemorrhage [Unknown]
  - Seizure [Unknown]
  - Intestinal perforation [Unknown]
  - Cerebral ischaemia [Unknown]
  - Intracranial calcification [Unknown]
  - Drug effective for unapproved indication [Unknown]
  - Off label use [Unknown]
